FAERS Safety Report 7401308 (Version 4)
Quarter: 2014Q1

REPORT INFORMATION
  Report Type: Spontaneous
  Country: US (occurrence: US)
  Receive Date: 20100527
  Receipt Date: 20140106
  Transmission Date: 20141002
  Serious: Yes (Hospitalization)
  Sender: FDA-Public Use
  Company Number: US-BAYER-201023261NA

PATIENT
  Age: 25 Year
  Sex: Female
  Weight: 70.75 kg

DRUGS (2)
  1. YASMIN [Suspect]
     Dosage: UNK
     Route: 048
     Dates: start: 200711, end: 200804
  2. PERCOCET [Concomitant]
     Indication: PAIN

REACTIONS (2)
  - Cholecystitis chronic [None]
  - Gallbladder disorder [None]
